FAERS Safety Report 7798159-1 (Version None)
Quarter: 2011Q4

REPORT INFORMATION
  Report Type: 
  Country: None (occurrence: None)
  Receive Date: 20111005
  Receipt Date: 20110923
  Transmission Date: 20120403
  Serious: Yes (Other)
  Sender: FDA-Public Use
  Company Number: US-BAYER-2011-019309

PATIENT
  Sex: Female
  Weight: 93 kg

DRUGS (18)
  1. OMEPRAZOLE [Concomitant]
     Dosage: 20 MG, UNK
  2. TOPAMAX [Concomitant]
  3. MOTRIN [Concomitant]
     Indication: HEADACHE
  4. RELPAX [Concomitant]
     Dosage: 40 MG, UNK
  5. YASMIN [Suspect]
     Indication: ORAL CONTRACEPTION
     Dosage: UNK
     Route: 048
     Dates: start: 20030325, end: 20070212
  6. PROVENTIL [Concomitant]
  7. ZYRTEC [Concomitant]
     Dosage: 10 MG, UNK
  8. PREDNISONE [Concomitant]
  9. ATARAX [Concomitant]
     Dosage: 25 MG, UNK
  10. CEFUROXIME [Concomitant]
     Dosage: 500 MG, UNK
  11. CHANTIX [Concomitant]
     Dosage: 1 MG, UNK
  12. IBUPROFEN [Concomitant]
     Dosage: 800 MG, UNK
  13. PRILOSEC [Concomitant]
  14. AZITHROMYCIN [Concomitant]
     Dosage: 250 MG, UNK
  15. CHANTIX [Concomitant]
     Dosage: 0.5 MG, UNK
  16. NAPROSYN [Concomitant]
     Dosage: 500 MG, UNK
  17. ENTEX PSE [Concomitant]
  18. ALBUTEROL [Concomitant]
     Dosage: 90 ?G, UNK

REACTIONS (2)
  - DEEP VEIN THROMBOSIS [None]
  - PAIN [None]
